FAERS Safety Report 5425646-3 (Version None)
Quarter: 2007Q3

REPORT INFORMATION
  Report Type: 
  Country: None (occurrence: None)
  Receive Date: 20070824
  Receipt Date: 20070815
  Transmission Date: 20080115
  Serious: Yes (Other)
  Sender: FDA-Public Use
  Company Number: RU-PFIZER INC-2007068026

PATIENT
  Age: 57 Year
  Sex: Male

DRUGS (3)
  1. QUINAPRIL HCL [Suspect]
     Indication: HYPERTENSION
     Route: 048
     Dates: start: 20070601, end: 20070701
  2. AMLODIPINE [Concomitant]
     Dosage: DAILY DOSE:10MG
     Route: 048
  3. ATENOLOL [Concomitant]
     Route: 048
     Dates: start: 20070601, end: 20070701

REACTIONS (2)
  - BLOOD PRESSURE INADEQUATELY CONTROLLED [None]
  - DRUG INEFFECTIVE [None]
